FAERS Safety Report 13822651 (Version 1)
Quarter: 2017Q3

REPORT INFORMATION
  Report Type: Report from Study
  Country: AT (occurrence: AT)
  Receive Date: 20170801
  Receipt Date: 20170801
  Transmission Date: 20171127
  Serious: Yes (Hospitalization)
  Sender: FDA-Public Use
  Company Number: AT-BRISTOL-MYERS SQUIBB COMPANY-BMS-2017-056747

PATIENT
  Age: 74 Year
  Sex: Male
  Weight: 73 kg

DRUGS (24)
  1. THROMBO ASS [Concomitant]
     Active Substance: ASPIRIN
     Indication: PRODUCT USED FOR UNKNOWN INDICATION
     Dosage: 100 MG, UNK
     Route: 065
     Dates: start: 20161222
  2. HALDOL [Concomitant]
     Active Substance: HALOPERIDOL
     Indication: PRODUCT USED FOR UNKNOWN INDICATION
     Dosage: 9 GTT, UNK
     Route: 065
     Dates: start: 20161219
  3. CALCIUM GLYCEROPHOSPHATE\CELLULOSE\POLYETHYLENE GLYCOL\SACCHARIN SODIUM\SODIUM HYDROXIDE\SODIUM LAURYL SULFATE\SODIUM MAGNESIUM SILICATE\SODIUM MONOFLUOROPHOSPHATE\SORBITOL\WATER [Concomitant]
     Active Substance: CALCIUM GLYCEROPHOSPHATE\POLYETHYLENE GLYCOLS\POWDERED CELLULOSE\SACCHARIN SODIUM DIHYDRATE\SODIUM HYDROXIDE\SODIUM LAURYL SULFATE\SODIUM MAGNESIUM SILICATE\SODIUM MONOFLUOROPHOSPHATE\SORBITOL\WATER
     Indication: PRODUCT USED FOR UNKNOWN INDICATION
     Dosage: 1 DF, UNK
     Route: 065
     Dates: start: 20161201
  4. LIDAPRIM                           /00525601/ [Concomitant]
     Active Substance: SULFAMETROLE\TRIMETHOPRIM
     Indication: PRODUCT USED FOR UNKNOWN INDICATION
     Dosage: 1 TAB, UNK
     Route: 065
     Dates: start: 20170119
  5. POMALIDOMIDE [Suspect]
     Active Substance: POMALIDOMIDE
     Indication: PLASMA CELL MYELOMA
     Dosage: 4 MG, UNK
     Route: 048
     Dates: start: 20161222
  6. TAMSULOSIN [Concomitant]
     Active Substance: TAMSULOSIN
     Indication: PRODUCT USED FOR UNKNOWN INDICATION
     Dosage: 0.4 MG, UNK
     Route: 065
     Dates: start: 201701
  7. NOVALGIN [Concomitant]
     Active Substance: METAMIZOLE SODIUM
     Indication: PRODUCT USED FOR UNKNOWN INDICATION
     Dosage: 120 GTT, UNK
     Route: 065
     Dates: start: 20161201
  8. URBASON                            /00049601/ [Concomitant]
     Active Substance: METHYLPREDNISOLONE
     Indication: PRODUCT USED FOR UNKNOWN INDICATION
     Dosage: 4 MG, UNK
     Route: 065
     Dates: start: 20170316
  9. KALIORAL                           /00279301/ [Concomitant]
     Indication: PRODUCT USED FOR UNKNOWN INDICATION
     Dosage: 8 G, UNK
     Route: 065
     Dates: start: 20170112
  10. FOLSAN [Concomitant]
     Active Substance: FOLIC ACID
     Indication: PRODUCT USED FOR UNKNOWN INDICATION
     Route: 065
  11. CIPRALEX [Concomitant]
     Active Substance: ESCITALOPRAM OXALATE
     Indication: PRODUCT USED FOR UNKNOWN INDICATION
     Dosage: 10 MG, UNK
     Route: 065
     Dates: start: 2010
  12. ARANESP [Concomitant]
     Active Substance: DARBEPOETIN ALFA
     Indication: PRODUCT USED FOR UNKNOWN INDICATION
     Dosage: 500 ?G, UNK
     Route: 065
     Dates: start: 2015
  13. PROTIFAR [Concomitant]
     Indication: PRODUCT USED FOR UNKNOWN INDICATION
     Dosage: UNK
     Route: 065
     Dates: start: 20161219
  14. DEXAMETHASONE. [Suspect]
     Active Substance: DEXAMETHASONE
     Indication: PLASMA CELL MYELOMA
     Dosage: 40 MG, UNK
     Route: 048
     Dates: start: 20161222
  15. HYDAL [Concomitant]
     Active Substance: HYDROMORPHONE HYDROCHLORIDE
     Indication: PRODUCT USED FOR UNKNOWN INDICATION
     Dosage: 48 MG, UNK
     Route: 065
     Dates: start: 20161206
  16. CAL D VITA [Concomitant]
     Indication: PRODUCT USED FOR UNKNOWN INDICATION
     Dosage: 1 TAB, UNK
     Route: 065
     Dates: start: 20151222
  17. XGEVA [Concomitant]
     Active Substance: DENOSUMAB
     Indication: PRODUCT USED FOR UNKNOWN INDICATION
     Dosage: 120 MG, UNK
     Route: 065
     Dates: start: 20161206
  18. UROSIN                             /00003301/ [Concomitant]
     Indication: PRODUCT USED FOR UNKNOWN INDICATION
     Dosage: 100 MG, UNK
     Route: 065
     Dates: start: 20161222
  19. OLEOVIT                            /00056001/ [Concomitant]
     Indication: PRODUCT USED FOR UNKNOWN INDICATION
     Dosage: 40 GTT, UNK
     Route: 065
     Dates: start: 20161222
  20. PANTOPRAZOL [Concomitant]
     Active Substance: PANTOPRAZOLE SODIUM
     Indication: PRODUCT USED FOR UNKNOWN INDICATION
     Dosage: 40 MG, UNK
     Route: 065
     Dates: start: 20161223
  21. NIVOLUMAB [Suspect]
     Active Substance: NIVOLUMAB
     Indication: PLASMA CELL MYELOMA
     Dosage: 240 MG, UNK
     Route: 042
     Dates: start: 20161222, end: 20170608
  22. ZARZIO [Concomitant]
     Active Substance: FILGRASTIM
     Indication: PRODUCT USED FOR UNKNOWN INDICATION
     Dosage: 30 MILLION UNIT, UNK
     Route: 065
     Dates: start: 2013
  23. PASPERTIN                          /00041902/ [Concomitant]
     Active Substance: METOCLOPRAMIDE HYDROCHLORIDE
     Indication: PRODUCT USED FOR UNKNOWN INDICATION
     Dosage: 3 TAB, UNK
     Route: 065
     Dates: start: 20161219
  24. MALTODEXTRIN [Concomitant]
     Active Substance: MALTODEXTRIN
     Indication: PRODUCT USED FOR UNKNOWN INDICATION
     Dosage: UNK
     Route: 065
     Dates: start: 20161219

REACTIONS (1)
  - C-reactive protein increased [Recovered/Resolved]

NARRATIVE: CASE EVENT DATE: 20170622
